FAERS Safety Report 5977867-9 (Version None)
Quarter: 2008Q4

REPORT INFORMATION
  Report Type: 
  Country: None (occurrence: None)
  Receive Date: 20081203
  Receipt Date: 20081127
  Transmission Date: 20090506
  Serious: Yes (Other)
  Sender: FDA-Public Use
  Company Number: ES-JNJFOC-20080502134

PATIENT
  Sex: Male

DRUGS (4)
  1. RISPERDAL [Suspect]
     Indication: SCHIZOPHRENIA
     Route: 048
  2. RISPERDAL CONSTA [Suspect]
     Indication: DRUG USE FOR UNKNOWN INDICATION
     Route: 030
  3. RIVOTRIL [Concomitant]
  4. FLURAZEPAM [Concomitant]

REACTIONS (2)
  - LEUKOPENIA [None]
  - THROMBOCYTOPENIA [None]
